FAERS Safety Report 6922731-1 (Version None)
Quarter: 2010Q3

REPORT INFORMATION
  Report Type: 
  Country: None (occurrence: None)
  Receive Date: 20100813
  Receipt Date: 20100803
  Transmission Date: 20110219
  Serious: Yes (Hospitalization)
  Sender: FDA-Public Use
  Company Number: DE-ABBOTT-10P-062-0661126-00

PATIENT
  Sex: Male
  Weight: 80 kg

DRUGS (4)
  1. HUMIRA [Suspect]
     Indication: CROHN'S DISEASE
     Route: 058
     Dates: start: 20080726, end: 20080726
  2. HUMIRA [Suspect]
     Route: 058
     Dates: start: 20080809
  3. BUDESONIDE [Concomitant]
     Indication: CROHN'S DISEASE
  4. METHOTREXATE [Concomitant]
     Indication: CROHN'S DISEASE

REACTIONS (1)
  - PANCREATITIS ACUTE [None]
